FAERS Safety Report 8321494-5 (Version None)
Quarter: 2012Q2

REPORT INFORMATION
  Report Type: 
  Country: None (occurrence: None)
  Receive Date: 20120430
  Receipt Date: 20120430
  Transmission Date: 20120825
  Serious: Yes (Life-Threatening)
  Sender: FDA-Public Use
  Company Number: None

PATIENT
  Age: 58 Year
  Sex: Male
  Weight: 81.646 kg

DRUGS (1)
  1. CHANTIX [Suspect]
     Indication: SMOKING CESSATION THERAPY
     Dosage: 0.5MG,
     Route: 048
     Dates: start: 20120401, end: 20120408

REACTIONS (3)
  - SUICIDAL IDEATION [None]
  - ECONOMIC PROBLEM [None]
  - DEPRESSION [None]
